FAERS Safety Report 9228521 (Version 1)
Quarter: 2013Q2

REPORT INFORMATION
  Report Type: Spontaneous
  Country: DK (occurrence: DK)
  Receive Date: 20130412
  Receipt Date: 20130412
  Transmission Date: 20140414
  Serious: Yes (Life-Threatening)
  Sender: FDA-Public Use
  Company Number: DK-ROCHE-1212662

PATIENT
  Age: 63 Year
  Sex: Male

DRUGS (7)
  1. XELODA [Suspect]
     Indication: COLON CANCER
     Route: 048
     Dates: start: 20130322, end: 20130326
  2. METFORMIN HYDROCHLORIDE [Concomitant]
     Indication: DIABETES MELLITUS
     Route: 065
  3. EZETROL [Concomitant]
     Indication: HYPERLIPIDAEMIA
     Route: 065
  4. FINASTERID [Concomitant]
     Route: 065
  5. ZARATOR [Concomitant]
     Indication: HYPERLIPIDAEMIA
     Route: 065
  6. XATRAL [Concomitant]
     Route: 065
  7. LANTUS [Concomitant]
     Route: 065

REACTIONS (2)
  - Myocardial infarction [Recovered/Resolved]
  - Breast pain [Recovered/Resolved]
